FAERS Safety Report 11822460 (Version 2)
Quarter: 2016Q4

REPORT INFORMATION
  Report Type: Spontaneous
  Country: US (occurrence: US)
  Receive Date: 20151210
  Receipt Date: 20161017
  Transmission Date: 20170206
  Serious: No
  Sender: FDA-Public Use
  Company Number: US-JNJFOC-20150310963

PATIENT
  Age: 77 Year
  Sex: Male

DRUGS (9)
  1. IMBRUVICA [Suspect]
     Active Substance: IBRUTINIB
     Indication: CHRONIC LYMPHOCYTIC LEUKAEMIA
     Route: 048
     Dates: start: 2015
  2. CRESTOR [Concomitant]
     Active Substance: ROSUVASTATIN CALCIUM
  3. OXYBUTYNIN [Concomitant]
     Active Substance: OXYBUTYNIN
  4. IMBRUVICA [Suspect]
     Active Substance: IBRUTINIB
     Indication: CHRONIC LYMPHOCYTIC LEUKAEMIA
     Route: 048
     Dates: start: 20141003, end: 2015
  5. ASPIRIN. [Concomitant]
     Active Substance: ASPIRIN
  6. CARVEDILOL. [Concomitant]
     Active Substance: CARVEDILOL
  7. FENOFIBRATE. [Concomitant]
     Active Substance: FENOFIBRATE
  8. LASIX [Concomitant]
     Active Substance: FUROSEMIDE
  9. LOSARTAN. [Concomitant]
     Active Substance: LOSARTAN

REACTIONS (3)
  - Incorrect dose administered [Not Recovered/Not Resolved]
  - Thrombocytopenia [Unknown]
  - Haematuria [Not Recovered/Not Resolved]

NARRATIVE: CASE EVENT DATE: 20141009
